FAERS Safety Report 17560645 (Version 1)
Quarter: 2020Q1

REPORT INFORMATION
  Report Type: Spontaneous
  Country: US (occurrence: US)
  Receive Date: 20200319
  Receipt Date: 20200319
  Transmission Date: 20200409
  Serious: Yes (Hospitalization)
  Sender: FDA-Public Use
  Company Number: US-SA-2020SA069035

PATIENT
  Sex: Female

DRUGS (1)
  1. LEMTRADA [Suspect]
     Active Substance: ALEMTUZUMAB
     Dosage: UNK
     Route: 042
     Dates: start: 20200226

REACTIONS (5)
  - Ear haemorrhage [Unknown]
  - Oral mucosal blistering [Unknown]
  - Mouth haemorrhage [Unknown]
  - Petechiae [Unknown]
  - Platelet count abnormal [Unknown]
